FAERS Safety Report 11838499 (Version 3)
Quarter: 2016Q1

REPORT INFORMATION
  Report Type: Spontaneous
  Country: JP (occurrence: JP)
  Receive Date: 20151215
  Receipt Date: 20160122
  Transmission Date: 20160525
  Serious: Yes (Hospitalization, Other)
  Sender: FDA-Public Use
  Company Number: JP-009507513-1512JPN008033

PATIENT
  Sex: Female

DRUGS (4)
  1. BELSOMRA [Suspect]
     Active Substance: SUVOREXANT
     Indication: INSOMNIA
     Dosage: 340 MG QD, DIVIDED DOSE FREQUENCY UNKNOWN
     Route: 048
     Dates: start: 20151211, end: 20151211
  2. RESLIN TABLETS 25 [Suspect]
     Active Substance: TRAZODONE HYDROCHLORIDE
     Dosage: 2000 MG, QD DIVIDED DOSE FREQUENCY UNKNOWN
     Route: 048
  3. QUAZEPAM. [Concomitant]
     Active Substance: QUAZEPAM
     Dosage: 27 DF, UNK
     Route: 048
  4. MEILAX [Concomitant]
     Active Substance: ETHYL LOFLAZEPATE
     Dosage: 37 DF, UNK
     Route: 048

REACTIONS (3)
  - Overdose [Unknown]
  - Somnolence [Recovering/Resolving]
  - Suicide attempt [Unknown]

NARRATIVE: CASE EVENT DATE: 20151211
